FAERS Safety Report 23283214 (Version 2)
Quarter: 2023Q4

REPORT INFORMATION
  Report Type: Spontaneous
  Country: DE (occurrence: DE)
  Receive Date: 20231211
  Receipt Date: 20231214
  Transmission Date: 20240109
  Serious: Yes (Other)
  Sender: FDA-Public Use
  Company Number: DE-002147023-NVSC2023DE256157

PATIENT

DRUGS (3)
  1. RUXOLITINIB [Suspect]
     Active Substance: RUXOLITINIB
     Indication: Aphthous ulcer
     Dosage: 29 MG/M2, TID
     Route: 065
  2. RUXOLITINIB [Suspect]
     Active Substance: RUXOLITINIB
     Indication: Disruptive mood dysregulation disorder
  3. RUXOLITINIB [Suspect]
     Active Substance: RUXOLITINIB
     Indication: Mucocutaneous candidiasis

REACTIONS (9)
  - Disturbance in attention [Not Recovered/Not Resolved]
  - Blood creatinine increased [Recovered/Resolved]
  - Memory impairment [Not Recovered/Not Resolved]
  - Amnesia [Not Recovered/Not Resolved]
  - Bronchitis chronic [Recovered/Resolved]
  - Pneumocystis jirovecii infection [Recovered/Resolved]
  - Off label use [Unknown]
  - Product use in unapproved indication [Unknown]
  - Abnormal weight gain [Recovered/Resolved]
